FAERS Safety Report 5165613-0 (Version None)
Quarter: 2006Q4

REPORT INFORMATION
  Report Type: 
  Country: None (occurrence: None)
  Receive Date: 20061206
  Receipt Date: 19990812
  Transmission Date: 20070319
  Serious: Yes (Hospitalization, Other)
  Sender: FDA-Public Use
  Company Number: 10080018

PATIENT
  Sex: Female
  Weight: 2 kg

DRUGS (4)
  1. ZERIT [Suspect]
     Route: 064
  2. VIDEX [Suspect]
     Route: 064
  3. RETROVIR [Suspect]
     Indication: HIV INFECTION
     Route: 064
  4. RETROVIR [Suspect]
     Route: 048

REACTIONS (3)
  - BLOOD LACTIC ACID INCREASED [None]
  - DRUG EXPOSURE DURING PREGNANCY [None]
  - HIV INFECTION [None]
